FAERS Safety Report 8737715 (Version 2)
Quarter: 2013Q1

REPORT INFORMATION
  Report Type: Spontaneous
  Country: PT (occurrence: PT)
  Receive Date: 20120822
  Receipt Date: 20130123
  Transmission Date: 20140127
  Serious: Yes (Other)
  Sender: FDA-Public Use
  Company Number: PT-009507513-1208PRT008977

PATIENT
  Age: 17 Year
  Sex: Female

DRUGS (1)
  1. IVEMEND [Suspect]
     Indication: PROPHYLAXIS OF NAUSEA AND VOMITING
     Dosage: 150 MG, UNK

REACTIONS (1)
  - Anaphylactic shock [Recovered/Resolved]
